FAERS Safety Report 18991588 (Version 1)
Quarter: 2021Q1

REPORT INFORMATION
  Report Type: Spontaneous
  Country: CA (occurrence: CA)
  Receive Date: 20210310
  Receipt Date: 20210310
  Transmission Date: 20210420
  Serious: Yes (Other)
  Sender: FDA-Public Use
  Company Number: CA-GLAXOSMITHKLINE-CACH2021AMR011350

PATIENT
  Sex: Female
  Weight: 113 kg

DRUGS (3)
  1. ADVIL [Suspect]
     Active Substance: IBUPROFEN
     Indication: TOOTHACHE
     Dosage: UNK
  2. BENLYSTA [Suspect]
     Active Substance: BELIMUMAB
     Indication: SYSTEMIC LUPUS ERYTHEMATOSUS
     Dosage: 10 MG, Z, EVERY 4 WEEKS
     Route: 042
  3. TYLENOL [Suspect]
     Active Substance: ACETAMINOPHEN
     Indication: TOOTHACHE
     Dosage: UNK

REACTIONS (8)
  - Pericarditis [Unknown]
  - Angina pectoris [Unknown]
  - Chest pain [Unknown]
  - Endoscopy [Unknown]
  - Drug intolerance [Unknown]
  - Haematemesis [Unknown]
  - Tooth extraction [Unknown]
  - Off label use [Unknown]
